FAERS Safety Report 7549440-2 (Version None)
Quarter: 2011Q2

REPORT INFORMATION
  Report Type: 
  Country: None (occurrence: None)
  Receive Date: 20110615
  Receipt Date: 20040713
  Transmission Date: 20111010
  Serious: Yes (Hospitalization, Other)
  Sender: FDA-Public Use
  Company Number: PHFR2004GB01876

PATIENT
  Sex: Female

DRUGS (3)
  1. CLOZAPINE [Suspect]
     Indication: SCHIZOPHRENIA
     Dosage: 500 MG
     Route: 048
     Dates: start: 19950727
  2. CLOZAPINE [Suspect]
     Dosage: 300MG NOCTE
  3. IRON SUPPLEMENTS [Concomitant]
     Route: 065

REACTIONS (6)
  - HYDRONEPHROSIS [None]
  - JOINT INJURY [None]
  - ANAEMIA [None]
  - HAEMOGLOBIN DECREASED [None]
  - URETERIC OBSTRUCTION [None]
  - LIVER DISORDER [None]
